FAERS Safety Report 25776986 (Version 1)
Quarter: 2025Q3

REPORT INFORMATION
  Report Type: Spontaneous
  Country: US (occurrence: US)
  Receive Date: 20250909
  Receipt Date: 20250909
  Transmission Date: 20251021
  Serious: No
  Sender: GE HEALTHCARE
  Company Number: US-GE HEALTHCARE-2025CSU012016

PATIENT
  Age: 77 Year
  Sex: Female

DRUGS (1)
  1. OPTISON [Suspect]
     Active Substance: HUMAN ALBUMIN MICROSPHERES\PERFLUTREN
     Indication: Echocardiogram
     Route: 065
     Dates: start: 20250828

REACTIONS (3)
  - Dizziness [Recovering/Resolving]
  - Tremor [Recovering/Resolving]
  - Blood pressure increased [Recovering/Resolving]

NARRATIVE: CASE EVENT DATE: 20250828
